FAERS Safety Report 10062657 (Version 1)
Quarter: 2014Q2

REPORT INFORMATION
  Report Type: Spontaneous
  Country: JP (occurrence: JP)
  Receive Date: 20140407
  Receipt Date: 20140407
  Transmission Date: 20141212
  Serious: Yes (Hospitalization)
  Sender: FDA-Public Use
  Company Number: JP-TEVA-473149ISR

PATIENT
  Age: 77 Year
  Sex: Female
  Weight: 54 kg

DRUGS (2)
  1. CISPLATIN [Suspect]
     Indication: GASTRIC CANCER STAGE IV
     Route: 065
     Dates: start: 201208
  2. GIMERACIL, OTERACIL, TEGAFUR [Suspect]
     Indication: GASTRIC CANCER STAGE IV
     Route: 065
     Dates: start: 201208

REACTIONS (3)
  - Emphysematous cholecystitis [Recovered/Resolved]
  - Erythropenia [Unknown]
  - Thrombocytopenia [Unknown]
